FAERS Safety Report 10204035 (Version 2)
Quarter: 2014Q2

REPORT INFORMATION
  Report Type: Spontaneous
  Country: IT (occurrence: IT)
  Receive Date: 20140529
  Receipt Date: 20140602
  Transmission Date: 20141212
  Serious: Yes (Other)
  Sender: FDA-Public Use
  Company Number: IT-PFIZER INC-2014144534

PATIENT
  Age: 50 Year
  Sex: Female

DRUGS (2)
  1. LYRICA [Suspect]
     Dosage: 3900 MG, TOTAL DOSAGE
     Route: 048
     Dates: start: 20140511, end: 20140511
  2. XANAX [Suspect]
     Dosage: 70 GTT, TOTAL DOSAGE
     Route: 048
     Dates: start: 20140511, end: 20140511

REACTIONS (6)
  - Drug abuse [Unknown]
  - Intentional self-injury [Unknown]
  - Constipation [Recovered/Resolved]
  - Headache [Recovered/Resolved]
  - Mydriasis [Recovered/Resolved]
  - Somnolence [Recovered/Resolved]
